FAERS Safety Report 6603810-5 (Version None)
Quarter: 2010Q1

REPORT INFORMATION
  Report Type: 
  Country: None (occurrence: None)
  Receive Date: 20100226
  Receipt Date: 20090209
  Transmission Date: 20100710
  Serious: No
  Sender: FDA-Public Use
  Company Number: A0767717A

PATIENT
  Sex: Female

DRUGS (3)
  1. LAMICTAL CD [Suspect]
     Indication: BIPOLAR DISORDER
     Route: 048
  2. KLONOPIN [Concomitant]
  3. RISPERDAL [Concomitant]

REACTIONS (2)
  - DYSMENORRHOEA [None]
  - METRORRHAGIA [None]
